FAERS Safety Report 4806276-0 (Version None)
Quarter: 2005Q4

REPORT INFORMATION
  Report Type: 
  Country: None (occurrence: None)
  Receive Date: 20051021
  Receipt Date: 20051014
  Transmission Date: 20060501
  Serious: Yes (Life-Threatening)
  Sender: FDA-Public Use
  Company Number: DE-ABBOTT-05P-062-0313996-00

PATIENT
  Sex: Male

DRUGS (1)
  1. CIPRALEX FILM-COATED TABLETS [Suspect]
     Indication: DRUG USE FOR UNKNOWN INDICATION
     Dates: start: 20050915

REACTIONS (2)
  - CARDIAC ARREST [None]
  - CIRCULATORY COLLAPSE [None]
